FAERS Safety Report 5750395-1 (Version None)
Quarter: 2008Q2

REPORT INFORMATION
  Report Type: 
  Country: None (occurrence: None)
  Receive Date: 20080523
  Receipt Date: 20080523
  Transmission Date: 20081010
  Serious: Yes (Life-Threatening, Hospitalization, Other)
  Sender: FDA-Public Use
  Company Number: None

PATIENT
  Sex: Female
  Weight: 72.5755 kg

DRUGS (2)
  1. PAROXETINE HCL [Suspect]
     Indication: DEPRESSION
     Dosage: ONE TABLET DAILY
     Dates: start: 20080417, end: 20080418
  2. SEROQUEL [Suspect]

REACTIONS (8)
  - ADVERSE DRUG REACTION [None]
  - BURNING SENSATION [None]
  - DEPRESSION [None]
  - DYSPNOEA [None]
  - HALLUCINATION, VISUAL [None]
  - HEART RATE INCREASED [None]
  - INJURY [None]
  - VISUAL DISTURBANCE [None]
